FAERS Safety Report 17739787 (Version 4)
Quarter: 2020Q3

REPORT INFORMATION
  Report Type: Spontaneous
  Country: US (occurrence: US)
  Receive Date: 20200504
  Receipt Date: 20200722
  Transmission Date: 20201102
  Serious: No
  Sender: FDA-Public Use
  Company Number: US-HTU-2019US019068

PATIENT
  Sex: Female

DRUGS (3)
  1. ALLEGRA?D                          /01367401/ [Concomitant]
  2. OXSORALEN?ULTRA [Concomitant]
     Active Substance: METHOXSALEN
  3. VALCHLOR [Suspect]
     Active Substance: MECHLORETHAMINE
     Indication: CUTANEOUS T-CELL LYMPHOMA
     Dosage: THIN FILM, SINGLE
     Route: 061
     Dates: start: 20150406

REACTIONS (6)
  - Gastrointestinal pain [Unknown]
  - Intentional dose omission [Unknown]
  - Product use issue [Unknown]
  - Condition aggravated [Not Recovered/Not Resolved]
  - Skin plaque [Not Recovered/Not Resolved]
  - Dysgeusia [Recovered/Resolved]
